FAERS Safety Report 26139637 (Version 1)
Quarter: 2025Q4

REPORT INFORMATION
  Report Type: Spontaneous
  Country: EU (occurrence: EU)
  Receive Date: 20251210
  Receipt Date: 20251210
  Transmission Date: 20260117
  Serious: Yes (Other)
  Sender: REGENERON
  Company Number: EU-BAYER-2025A161730

PATIENT
  Sex: Female

DRUGS (7)
  1. EYLEA [Suspect]
     Active Substance: AFLIBERCEPT
     Indication: Product used for unknown indication
     Dosage: BOTH EYES; 40MG/ML
     Route: 031
     Dates: start: 202407
  2. EYLEA [Suspect]
     Active Substance: AFLIBERCEPT
     Dosage: LEFT EYE; TOTAL OF 8 DOSES PRIOR TO THE EVENTS; 40MG/ML
     Dates: start: 20251002, end: 20251002
  3. EYLEA [Suspect]
     Active Substance: AFLIBERCEPT
     Dosage: RIGHT EYE; TOTAL OF 10 DOSES PRIOR TO THE EVENTS; 40MG/ML
     Dates: start: 20251002, end: 20251002
  4. MIRTAZAPINE [Concomitant]
     Active Substance: MIRTAZAPINE
     Indication: Bladder cancer
  5. OXAZEPAM [Concomitant]
     Active Substance: OXAZEPAM
     Indication: Bladder cancer
     Dosage: UNK
  6. ACETAMINOPHEN\CODEINE PHOSPHATE [Concomitant]
     Active Substance: ACETAMINOPHEN\CODEINE PHOSPHATE
     Indication: Bladder cancer
  7. PHLOROGLUCINOL [Concomitant]
     Active Substance: PHLOROGLUCINOL
     Indication: Bladder cancer

REACTIONS (5)
  - Blindness unilateral [Recovered/Resolved]
  - Eye inflammation [Recovering/Resolving]
  - Visual acuity reduced [Recovered/Resolved]
  - Corneal pigmentation [Unknown]
  - Anterior chamber flare [Unknown]

NARRATIVE: CASE EVENT DATE: 20251001
